FAERS Safety Report 21128454 (Version 5)
Quarter: 2022Q3

REPORT INFORMATION
  Report Type: Report from Study
  Country: NL (occurrence: NL)
  Receive Date: 20220725
  Receipt Date: 20220829
  Transmission Date: 20221027
  Serious: Yes (Death, Hospitalization)
  Sender: FDA-Public Use
  Company Number: NL-PFIZER INC-PV202200024604

PATIENT
  Age: 40 Year
  Sex: Female

DRUGS (2)
  1. SUNITINIB MALATE [Suspect]
     Active Substance: SUNITINIB MALATE
     Indication: Colorectal cancer metastatic
     Dosage: 700 MG, CYCLIC ONCE EVERY 2 WEEKS, PULSATILE
     Route: 048
     Dates: start: 20220613, end: 20220613
  2. SUNITINIB MALATE [Suspect]
     Active Substance: SUNITINIB MALATE
     Dosage: 700 MG, CYCLIC ONCE EVERY 2 WEEKS, PULSATILE
     Route: 048
     Dates: start: 20220628, end: 20220628

REACTIONS (2)
  - Abdominal sepsis [Fatal]
  - Neoplasm progression [Fatal]

NARRATIVE: CASE EVENT DATE: 20220714
